FAERS Safety Report 6124168-4 (Version None)
Quarter: 2009Q1

REPORT INFORMATION
  Report Type: 
  Country: None (occurrence: None)
  Receive Date: 20090319
  Receipt Date: 20090316
  Transmission Date: 20090719
  Serious: Yes (Other)
  Sender: FDA-Public Use
  Company Number: GB-JNJFOC-20090204878

PATIENT
  Age: 69 Year
  Sex: Female
  Weight: 87 kg

DRUGS (7)
  1. FENTANYL-25 [Suspect]
     Indication: DRUG USE FOR UNKNOWN INDICATION
     Route: 065
  2. ORAMORPH SR [Suspect]
     Indication: DRUG USE FOR UNKNOWN INDICATION
     Route: 065
  3. VELCADE [Suspect]
     Route: 040
  4. VELCADE [Suspect]
     Indication: MULTIPLE MYELOMA
     Route: 040
  5. CYTOXAN [Suspect]
     Indication: DRUG USE FOR UNKNOWN INDICATION
     Route: 048
  6. DECADRON [Suspect]
     Indication: DRUG USE FOR UNKNOWN INDICATION
     Route: 048
  7. THYROXINE [Concomitant]
     Route: 065

REACTIONS (1)
  - DRUG WITHDRAWAL SYNDROME [None]
